FAERS Safety Report 4554993-2 (Version None)
Quarter: 2004Q4

REPORT INFORMATION
  Report Type: 
  Country: None (occurrence: None)
  Receive Date: 20041228
  Receipt Date: 20040122
  Transmission Date: 20050328
  Serious: Yes (Hospitalization)
  Sender: FDA-Public Use
  Company Number: US-JNJFOC-20040105165

PATIENT
  Age: 33 Year
  Sex: Female
  Weight: 129.7287 kg

DRUGS (2)
  1. ORTHO TRI-CYCLEN LO [Suspect]
     Indication: MENSTRUAL DISORDER
     Dosage: 1 DOSE(S), 1 IN 1 DAY, ORAL
     Route: 048
     Dates: start: 20031101
  2. VALIUM [Concomitant]

REACTIONS (2)
  - BACK PAIN [None]
  - DEEP VEIN THROMBOSIS [None]
